FAERS Safety Report 13567858 (Version 1)
Quarter: 2017Q2

REPORT INFORMATION
  Report Type: Spontaneous
  Country: US (occurrence: AU)
  Receive Date: 20170522
  Receipt Date: 20170522
  Transmission Date: 20170830
  Serious: Yes (Other)
  Sender: FDA-Public Use
  Company Number: US-SUNOVION-2017SUN002121

PATIENT
  Age: 79 Year
  Sex: Male

DRUGS (2)
  1. GLYCOPYRROLATE. [Suspect]
     Active Substance: GLYCOPYRROLATE
     Indication: PRODUCT USED FOR UNKNOWN INDICATION
     Route: 055
  2. INDACATEROL AND GLYCOPYRROLATE [Suspect]
     Active Substance: GLYCOPYRROLATE\INDACATEROL MALEATE
     Indication: PRODUCT USED FOR UNKNOWN INDICATION
     Dosage: 1 DF, QD
     Route: 055
     Dates: start: 201610

REACTIONS (10)
  - Pulmonary hypertension [Unknown]
  - Malaise [Unknown]
  - Foreign body in eye [Unknown]
  - Feeling hot [Unknown]
  - Sinusitis [Unknown]
  - Abdominal discomfort [Unknown]
  - Dizziness [Unknown]
  - Panic attack [Unknown]
  - Balance disorder [Unknown]
  - Emphysema [Unknown]

NARRATIVE: CASE EVENT DATE: 201611
